FAERS Safety Report 5650499-8 (Version None)
Quarter: 2008Q1

REPORT INFORMATION
  Report Type: 
  Country: None (occurrence: None)
  Receive Date: 20080304
  Receipt Date: 20080304
  Transmission Date: 20080703
  Serious: Yes (Other)
  Sender: FDA-Public Use
  Company Number: None

PATIENT
  Sex: Female
  Weight: 74.8435 kg

DRUGS (1)
  1. TYSABRI [Suspect]
     Indication: MULTIPLE SCLEROSIS
     Dosage: 300MG  ONCE A MONTH  IV
     Route: 042
     Dates: start: 20070301, end: 20071031

REACTIONS (10)
  - BLOOD COUNT ABNORMAL [None]
  - DEPRESSION [None]
  - GINGIVAL DISORDER [None]
  - IMMUNE SYSTEM DISORDER [None]
  - LEPROSY [None]
  - LYMPHADENOPATHY [None]
  - MALAISE [None]
  - PRURITUS [None]
  - RASH [None]
  - TOOTH DISORDER [None]
